FAERS Safety Report 7956394-3 (Version None)
Quarter: 2011Q4

REPORT INFORMATION
  Report Type: 
  Country: None (occurrence: None)
  Receive Date: 20111205
  Receipt Date: 20111129
  Transmission Date: 20120403
  Serious: Yes (Other)
  Sender: FDA-Public Use
  Company Number: SE-PFIZER INC-2011286560

PATIENT
  Age: 71 Year
  Sex: Male

DRUGS (3)
  1. NICORETTE [Suspect]
     Indication: SMOKING CESSATION THERAPY
     Dosage: SINCE A LONG TIME AGO
     Route: 048
  2. NICORETTE [Suspect]
     Dosage: SINCE A LONG TIME AGO
     Route: 048
  3. NICOTINE [Suspect]
     Indication: SMOKING CESSATION THERAPY
     Dosage: FOR ABOUT 20 YEARS
     Route: 065

REACTIONS (4)
  - INCORRECT DRUG ADMINISTRATION DURATION [None]
  - BRAIN NEOPLASM [None]
  - METASTATIC RENAL CELL CARCINOMA [None]
  - EPILEPSY [None]
